FAERS Safety Report 5142357-2 (Version None)
Quarter: 2006Q4

REPORT INFORMATION
  Report Type: 
  Country: None (occurrence: None)
  Receive Date: 20061102
  Receipt Date: 20061031
  Transmission Date: 20070319
  Serious: Yes (Hospitalization, Other)
  Sender: FDA-Public Use
  Company Number: US-GLAXOSMITHKLINE-A0625605A

PATIENT
  Age: 36 Year
  Sex: Male

DRUGS (3)
  1. COMBIVIR [Suspect]
     Indication: HIV INFECTION
     Dosage: 1TAB TWICE PER DAY
     Route: 048
     Dates: start: 19960101, end: 20051001
  2. CRIXIVAN [Suspect]
     Indication: HIV INFECTION
     Dosage: 2TAB THREE TIMES PER DAY
     Dates: start: 19960101, end: 20051001
  3. NO CONCURRENT MEDICATION [Concomitant]

REACTIONS (8)
  - COUGH [None]
  - DEHYDRATION [None]
  - NAUSEA [None]
  - NEPHROLITHIASIS [None]
  - PAIN [None]
  - RENAL DISORDER [None]
  - RETCHING [None]
  - VOMITING [None]
